FAERS Safety Report 5126781-X (Version None)
Quarter: 2006Q4

REPORT INFORMATION
  Report Type: 
  Country: None (occurrence: None)
  Receive Date: 20061011
  Receipt Date: 20061011
  Transmission Date: 20070319
  Serious: Yes (Other)
  Sender: FDA-Public Use
  Company Number: None

PATIENT
  Age: 55 Year
  Sex: Female
  Weight: 70.7611 kg

DRUGS (1)
  1. RIFAMPIN [Suspect]
     Indication: CAT SCRATCH DISEASE
     Dosage: 600 MG   QD   PO
     Route: 048
     Dates: start: 20060926, end: 20061002

REACTIONS (8)
  - CHILLS [None]
  - DIZZINESS [None]
  - HEADACHE [None]
  - HYPERHIDROSIS [None]
  - HYPOTENSION [None]
  - MIGRAINE [None]
  - MYALGIA [None]
  - NAUSEA [None]
